FAERS Safety Report 9380216 (Version 1)
Quarter: 2013Q3

REPORT INFORMATION
  Report Type: Spontaneous
  Country: IE (occurrence: IE)
  Receive Date: 20130702
  Receipt Date: 20130702
  Transmission Date: 20140515
  Serious: Yes (Hospitalization)
  Sender: FDA-Public Use
  Company Number: IE-ABBOTT-13P-229-1111773-00

PATIENT
  Age: 29 Year
  Sex: Female

DRUGS (5)
  1. HUMIRA [Suspect]
     Indication: COLITIS ULCERATIVE
     Dosage: ONCE
     Route: 058
     Dates: start: 20130508
  2. HUMIRA [Suspect]
     Dosage: ONCE
     Route: 058
  3. HUMIRA [Suspect]
     Route: 058
  4. COLIFORM SUPPOSITORY [Concomitant]
     Indication: PRODUCT USED FOR UNKNOWN INDICATION
  5. MEZEVANT [Concomitant]
     Indication: PRODUCT USED FOR UNKNOWN INDICATION

REACTIONS (1)
  - Colectomy [Not Recovered/Not Resolved]
